FAERS Safety Report 22165716 (Version 1)
Quarter: 2023Q2

REPORT INFORMATION
  Report Type: Spontaneous
  Country: IT (occurrence: None)
  Receive Date: 20230403
  Receipt Date: 20230403
  Transmission Date: 20230722
  Serious: Yes (Hospitalization)
  Sender: FDA-Public Use
  Company Number: None

PATIENT
  Age: 51 Year
  Sex: Male

DRUGS (1)
  1. OBINUTUZUMAB [Suspect]
     Active Substance: OBINUTUZUMAB
     Indication: Chronic lymphocytic leukaemia
     Dosage: HIRED 1 TIME ONLY ON 6/03/2023. REACTION THAT OCCURRED APPROXIMATELY 30 MINUTES AFTER THE END OF THE
     Route: 065
     Dates: start: 20230306, end: 20230306

REACTIONS (5)
  - Infusion related reaction [Recovered/Resolved]
  - Musculoskeletal pain [Recovered/Resolved]
  - Oxygen saturation decreased [Recovered/Resolved]
  - Hypotension [Recovered/Resolved]
  - Pyrexia [Recovered/Resolved]

NARRATIVE: CASE EVENT DATE: 20230306
